FAERS Safety Report 9742688 (Version 1)
Quarter: 2013Q4

REPORT INFORMATION
  Report Type: Spontaneous
  Country: US (occurrence: US)
  Receive Date: 20131210
  Receipt Date: 20131210
  Transmission Date: 20140711
  Serious: No
  Sender: FDA-Public Use
  Company Number: US-GILEAD-2009-0025322

PATIENT
  Sex: Female
  Weight: 121.56 kg

DRUGS (11)
  1. LETAIRIS [Suspect]
     Indication: PULMONARY ARTERIAL HYPERTENSION
     Route: 048
     Dates: start: 20090825
  2. TYLENOL ARTHRITIS [Concomitant]
  3. METOPROLOL [Concomitant]
  4. AMLODIPINE BESYLATE [Concomitant]
  5. MELOXICAM [Concomitant]
  6. LISINOPRIL-HCTZ [Concomitant]
  7. METFORMIN HCL [Concomitant]
  8. ADVAIR 250-50 [Concomitant]
  9. ZETIA [Concomitant]
  10. FUROSEMIDE [Concomitant]
  11. ADULT ASPIRIN [Concomitant]

REACTIONS (1)
  - Oedema [Unknown]
